FAERS Safety Report 9855007 (Version 1)
Quarter: 2014Q1

REPORT INFORMATION
  Report Type: Spontaneous
  Country: JP (occurrence: JP)
  Receive Date: 20140130
  Receipt Date: 20140130
  Transmission Date: 20141002
  Serious: Yes (Other)
  Sender: FDA-Public Use
  Company Number: JP-OTSUKA-JP-2014-10343

PATIENT
  Age: 56 Year
  Sex: Male

DRUGS (2)
  1. SAMSCA [Suspect]
     Indication: ASCITES
     Dosage: UNK
     Route: 048
  2. SAMSCA [Suspect]
     Dosage: UNK, DOSE INCREASED
     Route: 048
     Dates: start: 20140121

REACTIONS (2)
  - Paralysis [Unknown]
  - Dysgeusia [Unknown]
